FAERS Safety Report 6963532-8 (Version None)
Quarter: 2010Q3

REPORT INFORMATION
  Report Type: 
  Country: None (occurrence: None)
  Receive Date: 20100902
  Receipt Date: 20100825
  Transmission Date: 20110219
  Serious: Yes (Other)
  Sender: FDA-Public Use
  Company Number: US-PFIZER INC-2010099661

PATIENT
  Sex: Female
  Weight: 106.12 kg

DRUGS (13)
  1. REVATIO [Suspect]
     Indication: PULMONARY HYPERTENSION
     Dosage: 20 MG, 3X/DAY
     Route: 048
     Dates: start: 20100501, end: 20100501
  2. ACETYLSALICYLIC ACID [Concomitant]
     Indication: ANGINA PECTORIS
     Dosage: 81 MG, 1X/DAY
     Dates: start: 20060101
  3. DIAMOX SRC [Concomitant]
     Indication: CARDIAC FAILURE CONGESTIVE
     Dosage: 2 MG, 2X/DAY
     Route: 048
     Dates: start: 20100401
  4. SYNTHROID [Concomitant]
     Indication: HYPOTHYROIDISM
     Dosage: 112 UG, 1X/DAY
     Route: 048
     Dates: start: 20070801
  5. COMBIVENT [Concomitant]
     Indication: DYSPNOEA
     Dosage: UNK
     Route: 055
     Dates: start: 20060101
  6. GABAPENTIN [Concomitant]
     Dosage: 300 MG, 1X/DAY
     Dates: start: 20100401
  7. COZAAR [Concomitant]
     Indication: HYPERTENSION
     Dosage: 100 MG, 1X/DAY
     Route: 048
     Dates: start: 20080101
  8. POTASSIUM CHLORIDE [Concomitant]
     Indication: BLOOD POTASSIUM DECREASED
     Dosage: 20 MEQ, AS NEEDED
     Dates: start: 20080101
  9. HYDROCORTISONE [Concomitant]
     Dosage: 40 MG, 2X/DAY
     Dates: start: 20070101
  10. INSULIN GLULISINE [Concomitant]
     Indication: DIABETES MELLITUS
     Dosage: UNK
     Route: 058
     Dates: start: 20080401
  11. VITAMIN D [Concomitant]
     Dosage: 55000 IU, WEEKLY
     Dates: start: 20081201
  12. LOPRESSOR [Concomitant]
     Indication: CARDIAC DISORDER
     Dosage: 50 MG, 2X/DAY
     Route: 048
     Dates: start: 20081201
  13. MECLIZINE [Concomitant]
     Indication: DIZZINESS
     Dosage: 25 MG, AS NEEDED
     Dates: start: 20070101

REACTIONS (3)
  - ABASIA [None]
  - DYSPNOEA [None]
  - FATIGUE [None]
